FAERS Safety Report 4745722-8 (Version None)
Quarter: 2005Q3

REPORT INFORMATION
  Report Type: 
  Country: None (occurrence: None)
  Receive Date: 20050815
  Receipt Date: 20050815
  Transmission Date: 20060218
  Serious: Yes (Other)
  Sender: FDA-Public Use
  Company Number: None

PATIENT
  Age: 50 Year
  Sex: Female
  Weight: 54.4316 kg

DRUGS (3)
  1. OXYCODONE HCL [Suspect]
     Indication: FIBROMYALGIA
     Dosage: 40 MG 4X DAY PO
     Route: 048
  2. OXYCODONE HCL [Suspect]
     Indication: INTERVERTEBRAL DISC DISORDER
     Dosage: 40 MG 4X DAY PO
     Route: 048
  3. OXYCODONE HCL [Suspect]
     Indication: OSTEOARTHRITIS
     Dosage: 40 MG 4X DAY PO
     Route: 048

REACTIONS (5)
  - ANXIETY [None]
  - HOT FLUSH [None]
  - INADEQUATE ANALGESIA [None]
  - INSOMNIA [None]
  - PHARMACEUTICAL PRODUCT COMPLAINT [None]
